FAERS Safety Report 7570814 (Version 2)
Quarter: 2012Q4

REPORT INFORMATION
  Report Type: 
  Country: MX (occurrence: MX)
  Receive Date: 20100902
  Receipt Date: 20120831
  Transmission Date: 20130627
  Serious: Yes (Death, Hospitalization, Other)
  Sender: FDA-Public Use
  Company Number: PHHY2010MX55376

PATIENT
  Age: 71 Year
  Sex: Female

DRUGS (1)
  1. DIOVAN [Suspect]
     Indication: HYPERTENSION
     Dosage: 160 mg, UNK
     Dates: start: 2005

REACTIONS (10)
  - Respiratory arrest [Fatal]
  - Central nervous system infection [Unknown]
  - Mental impairment [Unknown]
  - Immobile [Unknown]
  - Gait disturbance [Unknown]
  - General physical health deterioration [Unknown]
  - Cerebral infarction [Unknown]
  - Speech disorder [Unknown]
  - Kidney infection [Unknown]
  - Dialysis [None]
